FAERS Safety Report 8887127 (Version 1)
Quarter: 2012Q4

REPORT INFORMATION
  Report Type: 
  Country: CA (occurrence: CA)
  Receive Date: 20121105
  Receipt Date: 20121105
  Transmission Date: 20130627
  Serious: Yes (Other)
  Sender: FDA-Public Use
  Company Number: PHHY2012CA100947

PATIENT
  Sex: Female

DRUGS (3)
  1. ACLASTA [Suspect]
     Indication: OSTEOPOROSIS
     Dosage: UNK
     Route: 042
     Dates: start: 20100713
  2. ACLASTA [Suspect]
     Dosage: UNK
     Route: 042
     Dates: start: 20110831
  3. ACLASTA [Suspect]
     Dosage: UNK
     Route: 042
     Dates: start: 20120829

REACTIONS (2)
  - Balance disorder [Unknown]
  - Cognitive disorder [Unknown]
